FAERS Safety Report 12381744 (Version 1)
Quarter: 2016Q2

REPORT INFORMATION
  Report Type: Spontaneous
  Country: FR (occurrence: FR)
  Receive Date: 20160518
  Receipt Date: 20160518
  Transmission Date: 20160815
  Serious: Yes (Hospitalization)
  Sender: FDA-Public Use
  Company Number: FR-GLAXOSMITHKLINE-FR2016GSK066894

PATIENT
  Age: 36 Year
  Sex: Male

DRUGS (4)
  1. MALARONE [Suspect]
     Active Substance: ATOVAQUONE\PROGUANIL HYDROCHLORIDE
     Indication: MALARIA PROPHYLAXIS
     Dosage: UNK
     Route: 048
     Dates: start: 20151122, end: 20151204
  2. TYAVAX [Suspect]
     Active Substance: HEPATITIS A VACCINE, INACTIVATED\TYPHOID VACCINE
     Indication: ANTIVIRAL PROPHYLAXIS
     Dosage: 1 UNK, SINGLE
     Route: 030
     Dates: start: 20151120, end: 20151120
  3. STAMARIL [Suspect]
     Active Substance: YELLOW FEVER VIRUS STRAIN 17D-204 LIVE ANTIGEN
     Indication: PROPHYLAXIS
     Dosage: 1 UNK, SINGLE
     Route: 030
     Dates: start: 20151120, end: 20151120
  4. NEISVAC-C [Suspect]
     Active Substance: MENINGOCOCCAL POLYSACCHARIDE VACCINE C
     Dosage: 1 UNK, SINGLE
     Route: 030
     Dates: start: 20151120, end: 20151120

REACTIONS (1)
  - Diplopia [Recovered/Resolved]

NARRATIVE: CASE EVENT DATE: 20151128
